FAERS Safety Report 10071215 (Version 2)
Quarter: 2014Q2

REPORT INFORMATION
  Report Type: Report from Study
  Country: CA (occurrence: CA)
  Receive Date: 20140410
  Receipt Date: 20140410
  Transmission Date: 20141212
  Serious: Yes (Hospitalization, Other)
  Sender: FDA-Public Use
  Company Number: CA-ABBVIE-14P-028-1211672-00

PATIENT
  Sex: Female
  Weight: 47.22 kg

DRUGS (1)
  1. HUMIRA [Suspect]
     Indication: CROHN^S DISEASE
     Route: 058
     Dates: start: 20120925, end: 20140306

REACTIONS (6)
  - Small intestinal obstruction [Unknown]
  - Malaise [Not Recovered/Not Resolved]
  - Small intestinal obstruction [Recovered/Resolved]
  - Ileal stenosis [Unknown]
  - Intestinal fibrosis [Unknown]
  - Adverse drug reaction [Unknown]
